FAERS Safety Report 21338580 (Version 2)
Quarter: 2022Q4

REPORT INFORMATION
  Report Type: Spontaneous
  Country: CA (occurrence: CA)
  Receive Date: 20220915
  Receipt Date: 20221202
  Transmission Date: 20230112
  Serious: Yes (Other)
  Sender: FDA-Public Use
  Company Number: CA-PADAGIS-2022PAD00658

PATIENT
  Age: 52 Year
  Sex: Female

DRUGS (1)
  1. ALBUTEROL SULFATE [Suspect]
     Active Substance: ALBUTEROL SULFATE
     Indication: Pulmonary fibrosis
     Dosage: 100 ?G, AS NEEDED
     Route: 065

REACTIONS (1)
  - Drug ineffective for unapproved indication [Unknown]
